FAERS Safety Report 11175960 (Version 15)
Quarter: 2019Q1

REPORT INFORMATION
  Report Type: Report from Study
  Country: US (occurrence: US)
  Receive Date: 20150609
  Receipt Date: 20190103
  Transmission Date: 20190417
  Serious: Yes (Hospitalization)
  Sender: FDA-Public Use
  Company Number: US-ACTELION-A-US2015-118839

PATIENT
  Age: 38 Year
  Sex: Female
  Weight: 81.63 kg

DRUGS (13)
  1. LETAIRIS [Concomitant]
     Active Substance: AMBRISENTAN
     Dosage: 10 MG, QD
  2. SILDENAFIL. [Concomitant]
     Active Substance: SILDENAFIL
     Dosage: 20 MG, TID
  3. ZANTAC [Concomitant]
     Active Substance: RANITIDINE HYDROCHLORIDE
  4. DILTIAZEM. [Concomitant]
     Active Substance: DILTIAZEM
  5. MOTRIN [Concomitant]
     Active Substance: IBUPROFEN
  6. VELETRI [Suspect]
     Active Substance: EPOPROSTENOL
     Indication: PULMONARY ARTERIAL HYPERTENSION
     Dosage: 4 NG/KG, PER MIN
     Route: 042
     Dates: start: 20130420
  7. VELETRI [Suspect]
     Active Substance: EPOPROSTENOL
     Dosage: 10 NG/KG, PER MIN
     Route: 042
  8. QVAR [Concomitant]
     Active Substance: BECLOMETHASONE DIPROPIONATE
  9. POTASSIUM [Concomitant]
     Active Substance: POTASSIUM
  10. NORVASC [Concomitant]
     Active Substance: AMLODIPINE BESYLATE
  11. ORENITRAM [Concomitant]
     Active Substance: TREPROSTINIL
  12. ADVAIR HFA [Concomitant]
     Active Substance: FLUTICASONE PROPIONATE\SALMETEROL XINAFOATE
  13. SINGULAIR [Concomitant]
     Active Substance: MONTELUKAST SODIUM

REACTIONS (16)
  - Flushing [Unknown]
  - Thyroid cancer [Unknown]
  - Hypoxia [Unknown]
  - Bronchitis [Recovered/Resolved]
  - Abdominal pain upper [Unknown]
  - Upper respiratory tract infection [Recovering/Resolving]
  - Dyspnoea [Recovered/Resolved]
  - Asthma [Unknown]
  - Central venous catheterisation [Unknown]
  - Pneumonia [Recovering/Resolving]
  - Catheter site infection [Unknown]
  - Chest pain [Recovered/Resolved]
  - Hospitalisation [Unknown]
  - Asthenia [Unknown]
  - Abdominal pain [Unknown]
  - Therapy change [Unknown]

NARRATIVE: CASE EVENT DATE: 20151026
